FAERS Safety Report 13162712 (Version 2)
Quarter: 2017Q1

REPORT INFORMATION
  Report Type: Report from Study
  Country: DE (occurrence: DE)
  Receive Date: 20170130
  Receipt Date: 20170314
  Transmission Date: 20170428
  Serious: Yes (Death)
  Sender: FDA-Public Use
  Company Number: DE-ACTELION-A-CH2017-148700

PATIENT
  Age: 81 Year
  Sex: Female

DRUGS (11)
  1. UPTRAVI [Suspect]
     Active Substance: SELEXIPAG
     Dosage: 200 ?G, BID
     Route: 048
     Dates: start: 20161203, end: 20161206
  2. UPTRAVI [Suspect]
     Active Substance: SELEXIPAG
     Dosage: 200 ?G, QD
     Route: 048
     Dates: start: 20161207, end: 20161211
  3. REVATIO [Concomitant]
     Active Substance: SILDENAFIL CITRATE
     Indication: PULMONARY ARTERIAL HYPERTENSION
     Dosage: UNK
     Route: 048
  4. SPIRONOLACTONE. [Concomitant]
     Active Substance: SPIRONOLACTONE
     Dosage: 25 MG, QD
  5. TORASEMID [Concomitant]
     Active Substance: TORSEMIDE
     Dosage: 5 MG, BID
  6. OXYGEN. [Concomitant]
     Active Substance: OXYGEN
  7. ASA [Concomitant]
     Active Substance: ASPIRIN
     Dosage: 100 MG, QD
  8. UPTRAVI [Suspect]
     Active Substance: SELEXIPAG
     Dosage: UNK ?G, UNK
     Route: 048
     Dates: start: 201607
  9. OMEPRAZOL [Concomitant]
     Active Substance: OMEPRAZOLE
     Dosage: 20 MG, QD
  10. DILTIAZEM. [Concomitant]
     Active Substance: DILTIAZEM
     Dosage: 90 MG, QD
  11. UPTRAVI [Suspect]
     Active Substance: SELEXIPAG
     Indication: PULMONARY ARTERIAL HYPERTENSION
     Dosage: 400 ?G, BID
     Route: 048
     Dates: start: 20161129, end: 20161202

REACTIONS (9)
  - Nausea [Unknown]
  - Death [Fatal]
  - Gamma-glutamyltransferase increased [Unknown]
  - Therapy non-responder [Unknown]
  - Blood alkaline phosphatase increased [Unknown]
  - Myalgia [Unknown]
  - General physical health deterioration [Unknown]
  - Vomiting [Unknown]
  - Arthralgia [Unknown]

NARRATIVE: CASE EVENT DATE: 20170107
